FAERS Safety Report 15084448 (Version 2)
Quarter: 2018Q3

REPORT INFORMATION
  Report Type: Spontaneous
  Country: FR (occurrence: FR)
  Receive Date: 20180628
  Receipt Date: 20180726
  Transmission Date: 20181010
  Serious: Yes (Hospitalization)
  Sender: FDA-Public Use
  Company Number: FR-TEVA-2018-FR-914908

PATIENT
  Age: 70 Year
  Sex: Male

DRUGS (8)
  1. BACTRIM [Suspect]
     Active Substance: SULFAMETHOXAZOLE\TRIMETHOPRIM
     Route: 048
     Dates: start: 201606, end: 201608
  2. VESICARE [Suspect]
     Active Substance: SOLIFENACIN SUCCINATE
     Indication: URINARY INCONTINENCE
     Dosage: 5 MILLIGRAM DAILY;
     Route: 048
     Dates: start: 201610, end: 20170725
  3. NAUSICALM (DIMENHYDRINATE) [Suspect]
     Active Substance: DIMENHYDRINATE
     Indication: NAUSEA
     Dosage: 3 DOSAGE FORMS DAILY;
     Route: 048
     Dates: start: 20170711, end: 20170728
  4. BACTRIM [Suspect]
     Active Substance: SULFAMETHOXAZOLE\TRIMETHOPRIM
     Indication: PROSTATITIS
     Dosage: UNSPECIFIED
     Route: 048
     Dates: start: 20170725, end: 20170728
  5. DOMPERIDONE [Concomitant]
     Active Substance: DOMPERIDONE
     Indication: NAUSEA
     Dosage: 10 MILLIGRAM DAILY;
     Route: 048
     Dates: start: 20170728, end: 20170728
  6. CHLORHYDRATE DE LOPERAMIDE [Suspect]
     Active Substance: LOPERAMIDE HYDROCHLORIDE
     Indication: DIARRHOEA
     Dosage: 2 DOSAGE FORMS DAILY;
     Route: 048
     Dates: start: 20170711, end: 20170725
  7. CHLORHYDRATE DE LOPERAMIDE [Suspect]
     Active Substance: LOPERAMIDE HYDROCHLORIDE
     Dosage: 1 DOSAGE FORMS DAILY;
     Route: 048
     Dates: start: 20170711, end: 20170725
  8. TIORFAN 100 MG, G?LULE [Suspect]
     Active Substance: RACECADOTRIL
     Indication: DIARRHOEA
     Dosage: 3 DOSAGE FORMS DAILY;
     Route: 048
     Dates: start: 20170725, end: 20170728

REACTIONS (2)
  - Hepatocellular injury [Recovered/Resolved]
  - Transaminases increased [Recovered/Resolved]

NARRATIVE: CASE EVENT DATE: 20170728
